FAERS Safety Report 5022553-5 (Version None)
Quarter: 2006Q2

REPORT INFORMATION
  Report Type: 
  Country: None (occurrence: None)
  Receive Date: 20060605
  Receipt Date: 20060523
  Transmission Date: 20061013
  Serious: Yes (Other)
  Sender: FDA-Public Use
  Company Number: JP200605005323

PATIENT
  Sex: Male

DRUGS (2)
  1. GEMZAR [Suspect]
     Indication: PROSTATE CANCER
     Dosage: 600 MG, OTHER, INTRAVENOUS
     Route: 042
  2. TAXOL [Concomitant]

REACTIONS (1)
  - WEIGHT DECREASED [None]
